FAERS Safety Report 24861555 (Version 1)
Quarter: 2025Q1

REPORT INFORMATION
  Report Type: Spontaneous
  Country: MY (occurrence: MY)
  Receive Date: 20250120
  Receipt Date: 20250120
  Transmission Date: 20250409
  Serious: No
  Sender: ALKEM
  Company Number: MY-ALKEM LABORATORIES LIMITED-MY-ALKEM-2024-24425

PATIENT

DRUGS (2)
  1. NIFEDIPINE [Interacting]
     Active Substance: NIFEDIPINE
     Indication: Product used for unknown indication
     Route: 065
  2. PAXLOVID [Interacting]
     Active Substance: NIRMATRELVIR\RITONAVIR
     Indication: COVID-19
     Route: 065

REACTIONS (1)
  - Drug interaction [Unknown]
